FAERS Safety Report 6924476-0 (Version None)
Quarter: 2010Q3

REPORT INFORMATION
  Report Type: 
  Country: None (occurrence: None)
  Receive Date: 20100811
  Receipt Date: 20100804
  Transmission Date: 20110219
  Serious: Yes (Disabling)
  Sender: FDA-Public Use
  Company Number: OSCN-NO-0908S-0401

PATIENT
  Age: 48 Year
  Sex: Male
  Weight: 87 kg

DRUGS (2)
  1. OMNISCAN [Suspect]
     Indication: RENAL TRANSPLANT
     Dosage: SINGLE DOSE, I.V.
     Route: 042
     Dates: start: 20040831, end: 20040831
  2. OMNISCAN [Suspect]
     Indication: RENAL TRANSPLANT
     Dosage: SINGLE DOSE, I.V.
     Route: 042
     Dates: start: 20060608, end: 20060608

REACTIONS (3)
  - CEREBRAL CALCIFICATION [None]
  - HEADACHE [None]
  - NEPHROGENIC SYSTEMIC FIBROSIS [None]
